FAERS Safety Report 6896992-1 (Version None)
Quarter: 2010Q3

REPORT INFORMATION
  Report Type: 
  Country: None (occurrence: None)
  Receive Date: 20100802
  Receipt Date: 20070419
  Transmission Date: 20110219
  Serious: Yes (Other)
  Sender: FDA-Public Use
  Company Number: US-PFIZER INC-2007007375

PATIENT
  Age: 61 Year
  Sex: Female
  Weight: 115.2 kg

DRUGS (6)
  1. LYRICA [Suspect]
     Indication: DIABETIC NEUROPATHY
     Route: 048
     Dates: start: 20060517
  2. PLAVIX [Concomitant]
  3. ZOCOR [Concomitant]
     Dosage: AT BEDTIME
  4. INSULIN [Concomitant]
  5. PLENDIL [Concomitant]
  6. HUMULIN N [Concomitant]
     Route: 058

REACTIONS (4)
  - CEREBRAL INFARCTION [None]
  - EYELID PTOSIS [None]
  - IIIRD NERVE PARALYSIS [None]
  - VISION BLURRED [None]
